FAERS Safety Report 6366729-3 (Version None)
Quarter: 2009Q3

REPORT INFORMATION
  Report Type: 
  Country: None (occurrence: None)
  Receive Date: 20090921
  Receipt Date: 20090821
  Transmission Date: 20100115
  Serious: No
  Sender: FDA-Public Use
  Company Number: US-BAYER-200930835NA

PATIENT
  Age: 64 Year
  Sex: Female

DRUGS (6)
  1. ULTRAVIST 300 [Suspect]
     Indication: COMPUTERISED TOMOGRAM THORAX
     Dosage: TOTAL DAILY DOSE: 100 ML  UNIT DOSE: 200 ML
     Route: 042
  2. CADUET [Concomitant]
  3. VITAMIN D [Concomitant]
  4. OSCAL [Concomitant]
  5. LOVAZA [Concomitant]
  6. READI-CAT 2 BARIUM [Concomitant]

REACTIONS (1)
  - NAUSEA [None]
